FAERS Safety Report 10765253 (Version 2)
Quarter: 2015Q1

REPORT INFORMATION
  Report Type: Spontaneous
  Country: GB (occurrence: GB)
  Receive Date: 20150205
  Receipt Date: 20150213
  Transmission Date: 20150721
  Serious: No
  Sender: FDA-Public Use
  Company Number: GB-ROCHE-1532697

PATIENT
  Sex: Male

DRUGS (4)
  1. ROACTEMRA [Suspect]
     Active Substance: TOCILIZUMAB
     Route: 042
  2. ROACTEMRA [Suspect]
     Active Substance: TOCILIZUMAB
     Indication: RHEUMATOID ARTHRITIS
     Route: 058
     Dates: start: 20141201, end: 20141230
  3. ROACTEMRA [Suspect]
     Active Substance: TOCILIZUMAB
     Indication: RHEUMATOID ARTHRITIS
     Route: 042
     Dates: start: 20150113
  4. PREDNISOLON [Concomitant]
     Active Substance: PREDNISOLONE
     Indication: RHEUMATOID ARTHRITIS
     Route: 048

REACTIONS (1)
  - Anxiety [Recovered/Resolved]

NARRATIVE: CASE EVENT DATE: 20141222
